FAERS Safety Report 10527115 (Version 1)
Quarter: 2014Q4

REPORT INFORMATION
  Report Type: Spontaneous
  Country: CA (occurrence: None)
  Receive Date: 20141016
  Receipt Date: 20141016
  Transmission Date: 20150528
  Serious: Yes (Life-Threatening, Hospitalization, Disabling)
  Sender: FDA-Public Use
  Company Number: None

PATIENT
  Age: 26 Year
  Sex: Male
  Weight: 72.58 kg

DRUGS (1)
  1. CLONAZEPAM 3MG [Suspect]
     Active Substance: CLONAZEPAM
     Indication: SLEEP DISORDER
     Route: 048
     Dates: start: 20131031, end: 20141012

REACTIONS (5)
  - Suicidal ideation [None]
  - Depression [None]
  - Feeling abnormal [None]
  - Drug withdrawal syndrome [None]
  - Drug dependence [None]

NARRATIVE: CASE EVENT DATE: 20131031
